FAERS Safety Report 18492940 (Version 1)
Quarter: 2020Q4

REPORT INFORMATION
  Report Type: Other
  Country: DE (occurrence: DE)
  Receive Date: 20201112
  Receipt Date: 20201112
  Transmission Date: 20210114
  Serious: Yes (Life-Threatening, Other)
  Sender: FDA-Public Use
  Company Number: DE-ROCHE-209218

PATIENT
  Age: 70 Year
  Sex: Male
  Weight: 90 kg

DRUGS (55)
  1. ERYFER (GERMANY) [Suspect]
     Active Substance: ASCORBIC ACID\FERROUS SULFATE\SODIUM BICARBONATE
     Indication: NUTRITIONAL SUPPLEMENTATION
     Route: 048
     Dates: start: 19941005, end: 19941006
  2. ARELIX [Concomitant]
     Active Substance: PIRETANIDE
     Indication: CARDIAC FAILURE
     Route: 048
  3. FORTECORTIN [Concomitant]
     Active Substance: DEXAMETHASONE
     Indication: PROPHYLAXIS
     Route: 048
     Dates: end: 19940919
  4. TAVEGIL [Concomitant]
     Active Substance: CLEMASTINE FUMARATE
     Indication: HYPERSENSITIVITY
     Route: 048
     Dates: start: 19941008
  5. HALOTHANE. [Concomitant]
     Active Substance: HALOTHANE
     Indication: INDUCTION OF ANAESTHESIA
     Route: 055
     Dates: start: 19940919, end: 19940919
  6. ISOFLURAN [Concomitant]
     Active Substance: ISOFLURANE
     Indication: INDUCTION OF ANAESTHESIA
     Route: 055
     Dates: start: 19940919, end: 19940919
  7. TUTOFUSIN OP S [Concomitant]
     Indication: ELECTROLYTE SUBSTITUTION THERAPY
     Route: 042
     Dates: start: 19940920, end: 19940926
  8. CONTRADOL (ACETYLSALICYLIC ACID\CAFFEINE\PHENACETIN\CARBROMAL) [Suspect]
     Active Substance: ASPIRIN\CAFFEINE\CARBROMAL\PHENACETIN
     Indication: PAIN
     Route: 065
     Dates: start: 19940917, end: 19940917
  9. HAES-STERIL [Suspect]
     Active Substance: HETASTARCH
     Indication: HYPOVOLAEMIA
     Route: 042
     Dates: start: 19940923, end: 19940926
  10. ADALAT [Concomitant]
     Active Substance: NIFEDIPINE
     Indication: HYPERTONIA
     Route: 048
  11. TRAPANAL [Concomitant]
     Active Substance: THIOPENTAL SODIUM
     Indication: INDUCTION OF ANAESTHESIA
     Route: 042
     Dates: start: 19940919, end: 19940919
  12. EPANUTIN [Suspect]
     Active Substance: PHENYTOIN SODIUM
     Indication: SEIZURE PROPHYLAXIS
     Route: 042
     Dates: start: 19940919, end: 19940921
  13. ZENTROPIL [Suspect]
     Active Substance: PHENYTOIN
     Indication: SEIZURE PROPHYLAXIS
     Route: 048
     Dates: start: 19940830, end: 19940919
  14. FORTECORTIN [Suspect]
     Active Substance: DEXAMETHASONE
     Indication: PROPHYLAXIS
     Route: 042
     Dates: start: 19940919, end: 19940924
  15. ADALAT [Concomitant]
     Active Substance: NIFEDIPINE
     Indication: HYPERTONIA
     Dosage: INTERMITTENT DOSING.
     Route: 060
     Dates: end: 19940925
  16. CATAPRESSAN [Concomitant]
     Active Substance: CLONIDINE
     Indication: HYPERTONIA
     Dosage: VARIABLE DOSES GIVEN ON 10 AND 13 SEP.
     Route: 058
     Dates: end: 19940913
  17. TRACRIUM [Concomitant]
     Active Substance: ATRACURIUM BESYLATE
     Indication: INDUCTION OF ANAESTHESIA
     Route: 042
     Dates: start: 19940919, end: 19940919
  18. AKRINOR [Concomitant]
     Active Substance: CAFEDRINE HYDROCHLORIDE\THEODRENALINE
     Indication: HYPOTENSION
     Route: 042
     Dates: start: 19940919, end: 19940919
  19. SPIZEF (CEFUROXIME) [Suspect]
     Active Substance: CEFUROXIME
     Route: 042
     Dates: start: 19940923, end: 19940926
  20. PERIAMIN X [Suspect]
     Active Substance: AMINO ACIDS\ELECTROLYTES NOS\XYLITOL
     Indication: NUTRITIONAL SUPPLEMENTATION
     Route: 042
     Dates: start: 19940922, end: 19940924
  21. THROMBOPHOB (GERMANY) [Concomitant]
     Active Substance: HEPARIN SODIUM
     Indication: THROMBOSIS PROPHYLAXIS
     Dosage: VARIABLE DOSE.
     Route: 058
     Dates: end: 19940922
  22. DICLOFENAC [Concomitant]
     Active Substance: DICLOFENAC
     Indication: PRODUCT USED FOR UNKNOWN INDICATION
     Route: 048
     Dates: start: 19940913, end: 19940913
  23. DEHYDROBENZPERIDOL [Concomitant]
     Active Substance: DROPERIDOL
     Indication: INDUCTION OF ANAESTHESIA
     Route: 042
     Dates: start: 19940919, end: 19940919
  24. MUSCLE RELAXANTS [Concomitant]
     Active Substance: UNSPECIFIED INGREDIENT
     Indication: INDUCTION OF ANAESTHESIA
     Route: 042
     Dates: start: 19940919, end: 19940919
  25. ATOSIL [Concomitant]
     Indication: RESTLESSNESS
     Route: 042
     Dates: start: 19940920, end: 19940920
  26. LASIX [Suspect]
     Active Substance: FUROSEMIDE
     Indication: OEDEMA
     Route: 042
     Dates: start: 19940919, end: 19940920
  27. TRANXILIUM [Suspect]
     Active Substance: CLORAZEPATE DIPOTASSIUM
     Indication: PREMEDICATION
     Route: 048
     Dates: start: 19940913, end: 19940913
  28. TRANXILIUM [Suspect]
     Active Substance: CLORAZEPATE DIPOTASSIUM
     Route: 048
     Dates: start: 19940918, end: 19940918
  29. CODIPRONT (GERMANY) [Suspect]
     Active Substance: CODEINE\PHENYLTOLOXAMINE
     Indication: COUGH
     Route: 048
     Dates: start: 19940912, end: 19940913
  30. ACETYLCYSTEINE. [Suspect]
     Active Substance: ACETYLCYSTEINE
     Indication: COUGH
     Route: 048
     Dates: start: 19940916, end: 19940919
  31. URBASON [Concomitant]
     Active Substance: METHYLPREDNISOLONE
     Indication: HYPERSENSITIVITY
     Dates: start: 19941008
  32. SPASURET [Concomitant]
     Active Substance: FLAVOXATE HYDROCHLORIDE
     Indication: BLADDER DISORDER
     Route: 048
     Dates: start: 19940914, end: 19940918
  33. SUCCINYL [Concomitant]
     Active Substance: SUCCINYLCHOLINE CHLORIDE
     Indication: INDUCTION OF ANAESTHESIA
     Route: 042
     Dates: start: 19940919, end: 19940919
  34. EBRANTIL [Concomitant]
     Active Substance: URAPIDIL
     Indication: HYPERTENSION
     Route: 042
     Dates: start: 19940919, end: 19940919
  35. DIAZEPAM. [Suspect]
     Active Substance: DIAZEPAM
     Indication: SEIZURE
     Route: 042
     Dates: start: 19940922, end: 19940922
  36. SPIZEF (CEFUROXIME) [Suspect]
     Active Substance: CEFUROXIME
     Indication: INFECTION
     Route: 042
     Dates: start: 19940919, end: 19940919
  37. BENADRYL [Concomitant]
     Active Substance: DIPHENHYDRAMINE HYDROCHLORIDE
     Indication: COUGH
     Dosage: INTERMITTENT DOSING.
     Route: 048
     Dates: end: 19941006
  38. BEPANTHENE [Concomitant]
     Active Substance: DEXPANTHENOL
     Indication: OROPHARYNGEAL PAIN
     Dosage: INTERMITTENT DOSING.
     Route: 048
     Dates: end: 19940914
  39. FENTANYL. [Concomitant]
     Active Substance: FENTANYL
     Indication: INDUCTION OF ANAESTHESIA
     Dosage: DOSE REPORTED AS 0.1 (NO UNITS).
     Route: 042
     Dates: start: 19940919, end: 19940919
  40. LAUGHING GAS [Concomitant]
     Active Substance: NITROUS OXIDE
     Indication: INDUCTION OF ANAESTHESIA
     Route: 055
     Dates: start: 19940919, end: 19940919
  41. KALIUMCHLORID [Concomitant]
     Active Substance: POTASSIUM CHLORIDE
     Indication: ELECTROLYTE SUBSTITUTION THERAPY
     Route: 042
     Dates: start: 19940919, end: 19940920
  42. DIAZEPAM. [Suspect]
     Active Substance: DIAZEPAM
     Route: 042
     Dates: start: 19940923, end: 19940923
  43. CLONAZEPAM. [Suspect]
     Active Substance: CLONAZEPAM
     Indication: SEIZURE
     Route: 042
     Dates: start: 19940922, end: 19940922
  44. COTRIM FORTE [Suspect]
     Active Substance: SULFAMETHOXAZOLE\TRIMETHOPRIM
     Indication: INFECTION
     Route: 048
     Dates: start: 19940913, end: 19940918
  45. CODIPRONT (GERMANY) [Suspect]
     Active Substance: CODEINE\PHENYLTOLOXAMINE
     Dosage: DOSE IRREGULAR OR UNKNOWN.
     Route: 048
     Dates: start: 19941004, end: 19941006
  46. ACETYLCYSTEINE. [Suspect]
     Active Substance: ACETYLCYSTEINE
     Route: 048
     Dates: start: 19940926, end: 19941004
  47. ULCOGANT [Suspect]
     Active Substance: SUCRALFATE
     Indication: ULCER
     Route: 048
     Dates: start: 19940926, end: 19941004
  48. TAGAMET [Concomitant]
     Active Substance: CIMETIDINE
     Indication: HYPERSENSITIVITY
     Route: 048
     Dates: start: 19941008
  49. ATROPIN [Concomitant]
     Active Substance: ATROPINE
     Indication: INDUCTION OF ANAESTHESIA
     Route: 042
     Dates: start: 19940919, end: 19940919
  50. DOBUTREX [Concomitant]
     Active Substance: DOBUTAMINE HYDROCHLORIDE
     Indication: CARDIAC DISORDER
     Route: 042
     Dates: start: 19940919, end: 19940920
  51. HEPARIN SODIUM. [Suspect]
     Active Substance: HEPARIN SODIUM
     Indication: THROMBOSIS PROPHYLAXIS
     Route: 058
     Dates: start: 19940922, end: 19940926
  52. TEGRETAL [Suspect]
     Active Substance: CARBAMAZEPINE
     Indication: SEIZURE PROPHYLAXIS
     Route: 048
     Dates: start: 19940920
  53. ELOBACT [Suspect]
     Active Substance: CEFUROXIME AXETIL
     Indication: INFECTION
     Route: 048
     Dates: start: 19940926, end: 19941006
  54. ACETYLCYSTEINE. [Suspect]
     Active Substance: ACETYLCYSTEINE
     Route: 048
     Dates: start: 19940921, end: 19940926
  55. OSMOFUNDIN [MANNITOL] [Concomitant]
     Active Substance: MANNITOL
     Indication: PROPHYLAXIS
     Route: 042
     Dates: start: 19940919, end: 19940919

REACTIONS (15)
  - Stevens-Johnson syndrome [Recovering/Resolving]
  - Leukocytosis [Unknown]
  - Toxic epidermal necrolysis [Unknown]
  - Blister [Recovering/Resolving]
  - Aspartate aminotransferase increased [Unknown]
  - Blood lactate dehydrogenase increased [Unknown]
  - Pneumonia [Unknown]
  - Lymphocytosis [Unknown]
  - Gamma-glutamyltransferase increased [Unknown]
  - Conjunctivitis [Recovering/Resolving]
  - Rash [Recovering/Resolving]
  - Blood urea increased [Unknown]
  - Pyrexia [Recovering/Resolving]
  - Mucosal erosion [Recovering/Resolving]
  - Alanine aminotransferase increased [Unknown]

NARRATIVE: CASE EVENT DATE: 19941006
